FAERS Safety Report 17768445 (Version 4)
Quarter: 2020Q3

REPORT INFORMATION
  Report Type: Spontaneous
  Country: JP (occurrence: JP)
  Receive Date: 20200511
  Receipt Date: 20200902
  Transmission Date: 20201102
  Serious: Yes (Other)
  Sender: FDA-Public Use
  Company Number: JP-ALVOGEN-2020-ALVOGEN-108349

PATIENT
  Age: 25 Year
  Sex: Female

DRUGS (9)
  1. HEPARIN [Suspect]
     Active Substance: HEPARIN SODIUM
     Indication: PRODUCT USED FOR UNKNOWN INDICATION
  2. VASOLAN [Concomitant]
     Indication: ARRHYTHMIA
     Dosage: 40 MG AS NEEDED
     Route: 048
     Dates: start: 20171218, end: 20171227
  3. PROPAFENONE HYDROCHLORIDE. [Concomitant]
     Active Substance: PROPAFENONE HYDROCHLORIDE
     Indication: ARRHYTHMIA
     Route: 065
  4. RIVAROXABAN [Suspect]
     Active Substance: RIVAROXABAN
     Indication: PRODUCT USED FOR UNKNOWN INDICATION
     Route: 065
  5. INDERAL [Suspect]
     Active Substance: PROPRANOLOL HYDROCHLORIDE
     Indication: SUPRAVENTRICULAR TACHYCARDIA
     Dosage: 10 MG AS NEEDED
     Route: 048
     Dates: start: 20171215, end: 20171227
  6. TENORMIN [Suspect]
     Active Substance: ATENOLOL
     Indication: PRODUCT USED FOR UNKNOWN INDICATION
     Dosage: 25 MG DAILY AFTER BREAKFAST
     Route: 048
     Dates: start: 20141106, end: 20171218
  7. SELOKEN L [Suspect]
     Active Substance: METOPROLOL TARTRATE
     Indication: SUPRAVENTRICULAR TACHYCARDIA
     Route: 048
     Dates: start: 20171219, end: 20190422
  8. NEXIUM [Suspect]
     Active Substance: ESOMEPRAZOLE MAGNESIUM
     Indication: HYPERCHLORHYDRIA
     Route: 048
     Dates: start: 20141106
  9. COVERSYL [Concomitant]
     Active Substance: PERINDOPRIL
     Indication: ARRHYTHMIA
     Route: 048
     Dates: start: 20141108, end: 20171222

REACTIONS (5)
  - Abortion spontaneous [Unknown]
  - Exposure during pregnancy [Unknown]
  - Subchorionic haematoma [Unknown]
  - Supraventricular tachycardia [Unknown]
  - Foetal death [Unknown]

NARRATIVE: CASE EVENT DATE: 20171228
